FAERS Safety Report 8910975 (Version 1)
Quarter: 2012Q4

REPORT INFORMATION
  Report Type: 
  Country: IT (occurrence: IT)
  Receive Date: 20121116
  Receipt Date: 20121116
  Transmission Date: 20130627
  Serious: Yes (Other)
  Sender: FDA-Public Use
  Company Number: IT-JNJFOC-20121106860

PATIENT
  Sex: Female

DRUGS (4)
  1. DOXORUBICIN [Suspect]
     Indication: FALLOPIAN TUBE CANCER
     Dosage: 1mg/min
     Route: 042
  2. DOXORUBICIN [Suspect]
     Indication: MALIGNANT PERITONEAL NEOPLASM
     Dosage: 1mg/min
     Route: 042
  3. DOXORUBICIN [Suspect]
     Indication: OVARIAN CANCER
     Dosage: 1mg/min
     Route: 042
  4. LOPERAMIDE [Concomitant]
     Indication: ANTIDIARRHOEAL SUPPORTIVE CARE
     Route: 065

REACTIONS (1)
  - Arthralgia [Unknown]
